FAERS Safety Report 23917333 (Version 1)
Quarter: 2024Q2

REPORT INFORMATION
  Report Type: Spontaneous
  Country: CA (occurrence: CA)
  Receive Date: 20240529
  Receipt Date: 20240529
  Transmission Date: 20240716
  Serious: Yes (Hospitalization, Other)
  Sender: FDA-Public Use
  Company Number: CA-GILEAD-2024-0674469

PATIENT
  Age: 68 Year
  Sex: Female
  Weight: 99.2 kg

DRUGS (36)
  1. YESCARTA [Suspect]
     Active Substance: AXICABTAGENE CILOLEUCEL
     Indication: Diffuse large B-cell lymphoma
     Dosage: 1 DOSE FORM, ONCE
     Route: 042
  2. ACETAMINOPHEN [Concomitant]
     Active Substance: ACETAMINOPHEN
  3. ACTEMRA [Concomitant]
     Active Substance: TOCILIZUMAB
  4. ACYCLOVIR [Concomitant]
     Active Substance: ACYCLOVIR
  5. ALUMINUM HYDROXIDE [Concomitant]
     Active Substance: ALUMINUM HYDROXIDE
  6. MAGNESIUM HYDROXIDE [Concomitant]
     Active Substance: MAGNESIUM HYDROXIDE
  7. AMLODIPINE [Concomitant]
     Active Substance: AMLODIPINE BESYLATE
  8. ANUSOL HC [Concomitant]
     Active Substance: HYDROCORTISONE
  9. ATENOLOL [Concomitant]
     Active Substance: ATENOLOL
  10. BASAGLAR [Concomitant]
     Active Substance: INSULIN GLARGINE
  11. CHOLECALCIFEROL [Concomitant]
     Active Substance: CHOLECALCIFEROL
  12. CIPROFLOXACIN [Concomitant]
     Active Substance: CIPROFLOXACIN
  13. CLOTRIMAZOLE [Concomitant]
     Active Substance: CLOTRIMAZOLE
  14. DEXAMETHASONE [Concomitant]
     Active Substance: DEXAMETHASONE
  15. DIPHENHYDRAMINE HYDROCHLORIDE [Concomitant]
     Active Substance: DIPHENHYDRAMINE HYDROCHLORIDE
  16. EPINEPHRINE [Concomitant]
     Active Substance: EPINEPHRINE
  17. FLUCONAZOLE [Concomitant]
     Active Substance: FLUCONAZOLE
  18. FUROSEMIDE [Concomitant]
     Active Substance: FUROSEMIDE
  19. FILGRASTIM [Concomitant]
     Active Substance: FILGRASTIM
  20. HUMULIN R [Concomitant]
     Active Substance: INSULIN HUMAN
  21. HYDROCHLOROTHIAZIDE [Concomitant]
     Active Substance: HYDROCHLOROTHIAZIDE
  22. HYDROMORPHONE [Concomitant]
     Active Substance: HYDROMORPHONE
  23. KINERET [Concomitant]
     Active Substance: ANAKINRA
  24. LEVETIRACETAM [Concomitant]
     Active Substance: LEVETIRACETAM
  25. LEVOTHYROXINE SODIUM [Concomitant]
     Active Substance: LEVOTHYROXINE SODIUM
  26. LORAZEPAM [Concomitant]
     Active Substance: LORAZEPAM
  27. MAGNESIUM [Concomitant]
     Active Substance: MAGNESIUM
  28. MAGNESIUM SULFATE [Concomitant]
     Active Substance: MAGNESIUM SULFATE\MAGNESIUM SULFATE HEPTAHYDRATE
  29. MEPERIDINE [Concomitant]
     Active Substance: MEPERIDINE
  30. MEROPENEM [Concomitant]
     Active Substance: MEROPENEM
  31. METHYLPREDNISOLONE SODIUM SUCCINATE [Concomitant]
     Active Substance: METHYLPREDNISOLONE SODIUM SUCCINATE
  32. METOCLOPRAMIDE [Concomitant]
     Active Substance: METOCLOPRAMIDE
  33. NOVORAPID [Concomitant]
     Active Substance: INSULIN ASPART
  34. ONDANSETRON [Concomitant]
     Active Substance: ONDANSETRON
  35. PANTOPRAZOLE [Concomitant]
     Active Substance: PANTOPRAZOLE
  36. PENTAM [Concomitant]
     Active Substance: PENTAMIDINE ISETHIONATE

REACTIONS (3)
  - Electroencephalogram abnormal [Recovering/Resolving]
  - Intensive care [Recovering/Resolving]
  - Neurotoxicity [Recovering/Resolving]
